FAERS Safety Report 8384795-0 (Version None)
Quarter: 2012Q2

REPORT INFORMATION
  Report Type: 
  Country: None (occurrence: None)
  Receive Date: 20120524
  Receipt Date: 20120517
  Transmission Date: 20120825
  Serious: Yes (Other)
  Sender: FDA-Public Use
  Company Number: CA-ROCHE-1069135

PATIENT
  Sex: Female

DRUGS (7)
  1. WELLBUTRIN [Concomitant]
  2. ZOLOFT [Concomitant]
  3. NASONEX [Concomitant]
  4. XOLAIR [Suspect]
     Indication: ASTHMA
     Route: 058
     Dates: start: 20120418
  5. ADVAIR DISKUS 100/50 [Concomitant]
  6. VENTOLIN [Concomitant]
  7. SINGULAIR [Concomitant]

REACTIONS (2)
  - ASTHMA [None]
  - NASOPHARYNGITIS [None]
